FAERS Safety Report 12531511 (Version 6)
Quarter: 2016Q3

REPORT INFORMATION
  Report Type: Report from Study
  Country: US (occurrence: US)
  Receive Date: 20160706
  Receipt Date: 20160919
  Transmission Date: 20161109
  Serious: Yes (Hospitalization, Other)
  Sender: FDA-Public Use
  Company Number: US-GILEAD-2016-0222183

PATIENT
  Age: 68 Year
  Sex: Female

DRUGS (9)
  1. ORENITRAM [Concomitant]
     Active Substance: TREPROSTINIL
  2. LASIX [Concomitant]
     Active Substance: FUROSEMIDE
     Dosage: 100 MG, UNK
     Route: 048
  3. CARVEDILOL. [Concomitant]
     Active Substance: CARVEDILOL
  4. AMBRISENTAN [Suspect]
     Active Substance: AMBRISENTAN
     Indication: PRODUCT USED FOR UNKNOWN INDICATION
     Dosage: 10 MG, QD
     Route: 048
     Dates: start: 20091020
  5. REVATIO [Concomitant]
     Active Substance: SILDENAFIL CITRATE
  6. SILDENAFIL. [Concomitant]
     Active Substance: SILDENAFIL
     Dosage: 20 MG, UNK
     Route: 048
  7. NORVASC [Concomitant]
     Active Substance: AMLODIPINE BESYLATE
  8. AMLODIPINE [Concomitant]
     Active Substance: AMLODIPINE BESYLATE
  9. FUROSEMIDE. [Concomitant]
     Active Substance: FUROSEMIDE

REACTIONS (9)
  - Burning sensation [Not Recovered/Not Resolved]
  - Localised infection [Unknown]
  - Hip fracture [Unknown]
  - Hallucination [Unknown]
  - Arthralgia [Not Recovered/Not Resolved]
  - Blood glucose decreased [Unknown]
  - Syncope [Unknown]
  - Staphylococcal skin infection [Recovered/Resolved]
  - Fall [Not Recovered/Not Resolved]

NARRATIVE: CASE EVENT DATE: 20160608
